FAERS Safety Report 18575051 (Version 8)
Quarter: 2023Q1

REPORT INFORMATION
  Report Type: Spontaneous
  Country: US (occurrence: US)
  Receive Date: 20201203
  Receipt Date: 20230306
  Transmission Date: 20230417
  Serious: No
  Sender: FDA-Public Use
  Company Number: US-PFIZER INC-2017098770

PATIENT
  Age: 71 Year
  Sex: Female
  Weight: 128.82 kg

DRUGS (10)
  1. PREMARIN [Suspect]
     Active Substance: ESTROGENS, CONJUGATED
     Indication: Atrophic vulvovaginitis
     Dosage: UNK, 2X/WEEK (FINGERTIP AMOUNT TO INNER LABIA AND PERIURETHRALLY TWICE WEEKLY)
     Route: 067
     Dates: start: 20170217
  2. PREMARIN [Suspect]
     Active Substance: ESTROGENS, CONJUGATED
     Indication: Vulvovaginal dryness
     Dosage: UNK, 2X/WEEK (FINGERTIP AMOUNT TO INNER LABIA AND PERIURETHRALLY TWICE WEEKLY)
     Route: 067
     Dates: start: 20200918
  3. PREMARIN [Suspect]
     Active Substance: ESTROGENS, CONJUGATED
     Dosage: UNK
     Route: 067
  4. PREMARIN [Suspect]
     Active Substance: ESTROGENS, CONJUGATED
     Dosage: APPLY FINGERTIP AMOUNT TO INNER LABIA AND PERIURTHRALLY TWICE WEEKLY
     Route: 067
     Dates: start: 20210319
  5. PREMARIN [Suspect]
     Active Substance: ESTROGENS, CONJUGATED
     Dosage: 0.625 MG 2X/WEEK (0.625MG, ADMINISTERED TWICE A WEEK; USE FINGERTIP AMOUNT ON LABIA)
     Route: 067
  6. PREMARIN [Suspect]
     Active Substance: ESTROGENS, CONJUGATED
     Dosage: 0.5 G, DAILY (INSERT 0.5 G VAGINALLY DAILY)
     Route: 067
     Dates: start: 20210917
  7. PREMARIN [Suspect]
     Active Substance: ESTROGENS, CONJUGATED
     Dosage: 0.5 G, DAILY (INSERT 0.5 G VAGINALLY DAILY)
     Route: 067
     Dates: start: 20220505
  8. TOVIAZ [Concomitant]
     Active Substance: FESOTERODINE FUMARATE
     Indication: Atrophic vulvovaginitis
     Dosage: 8 MG, DAILY
     Route: 048
     Dates: start: 20170217
  9. TOVIAZ [Concomitant]
     Active Substance: FESOTERODINE FUMARATE
     Dosage: 8 MG
  10. TOVIAZ [Concomitant]
     Active Substance: FESOTERODINE FUMARATE
     Dosage: TAKE 1 TABLET (8 MG TOTAL) BY MOUTH DAILY. DO NOT CUT, CRUSH, OR CHEW TABLETS
     Route: 048
     Dates: start: 20210319

REACTIONS (5)
  - Off label use [Unknown]
  - Product use issue [Unknown]
  - Wrong technique in product usage process [Unknown]
  - Product prescribing error [Unknown]
  - Weight increased [Unknown]

NARRATIVE: CASE EVENT DATE: 20200918
